FAERS Safety Report 8530325 (Version 4)
Quarter: 2012Q4

REPORT INFORMATION
  Report Type: Report from Study
  Country: CA (occurrence: CA)
  Receive Date: 20120425
  Receipt Date: 20120914
  Transmission Date: 20130627
  Serious: Yes (Hospitalization, Other)
  Sender: FDA-Public Use
  Company Number: CA-ABBOTT-12P-028-0927434-00

PATIENT
  Age: 71 Year
  Sex: Male
  Weight: 93.07 kg

DRUGS (2)
  1. LUPRON DEPOT 7.5 MG [Suspect]
     Indication: PROSTATE CANCER
     Dates: start: 20120216
  2. ASA [Concomitant]
     Route: 048

REACTIONS (7)
  - Incontinence [Unknown]
  - Radiation skin injury [Unknown]
  - Scab [Not Recovered/Not Resolved]
  - Haemorrhage urinary tract [Unknown]
  - Haematuria [Unknown]
  - Cyst [Unknown]
  - Urinary bladder haemorrhage [Recovered/Resolved]
